FAERS Safety Report 6804314-7 (Version None)
Quarter: 2010Q2

REPORT INFORMATION
  Report Type: 
  Country: None (occurrence: None)
  Receive Date: 20100628
  Receipt Date: 20070305
  Transmission Date: 20101027
  Serious: No
  Sender: FDA-Public Use
  Company Number: US-PFIZER INC-2007017371

PATIENT
  Sex: Female

DRUGS (3)
  1. GEODON [Suspect]
  2. REGLAN [Suspect]
  3. EFFEXOR [Suspect]

REACTIONS (1)
  - MOVEMENT DISORDER [None]
